FAERS Safety Report 8448414-7 (Version None)
Quarter: 2012Q2

REPORT INFORMATION
  Report Type: 
  Country: None (occurrence: None)
  Receive Date: 20120612
  Receipt Date: 20120530
  Transmission Date: 20120825
  Serious: Yes (Hospitalization)
  Sender: FDA-Public Use
  Company Number: 2012-002062

PATIENT
  Age: 61 Year
  Sex: Male

DRUGS (1)
  1. RISEDRONATE SODIUM [Suspect]
     Indication: OSTEITIS DEFORMANS
     Dosage: 17.5 MG DAILY, ORAL
     Route: 048
     Dates: start: 20120421

REACTIONS (1)
  - PNEUMONIA [None]
